FAERS Safety Report 16163314 (Version 2)
Quarter: 2019Q2

REPORT INFORMATION
  Report Type: Spontaneous
  Country: US (occurrence: US)
  Receive Date: 20190405
  Receipt Date: 20190408
  Transmission Date: 20190711
  Serious: No
  Sender: FDA-Public Use
  Company Number: US-BAYER-2019-066342

PATIENT
  Age: 48 Year
  Sex: Female

DRUGS (1)
  1. ESTRADIOL. [Suspect]
     Active Substance: ESTRADIOL
     Indication: ENDOMETRIOSIS
     Route: 062

REACTIONS (4)
  - Product adhesion issue [None]
  - Emotional distress [Not Recovered/Not Resolved]
  - Pain [None]
  - Product use in unapproved indication [None]
